FAERS Safety Report 13071455 (Version 6)
Quarter: 2017Q2

REPORT INFORMATION
  Report Type: Spontaneous
  Country: US (occurrence: US)
  Receive Date: 20161229
  Receipt Date: 20170426
  Transmission Date: 20170830
  Serious: No
  Sender: FDA-Public Use
  Company Number: US-PFIZER INC-2016590794

PATIENT
  Age: 72 Year
  Sex: Female

DRUGS (3)
  1. LETROZOLE. [Suspect]
     Active Substance: LETROZOLE
     Dosage: 2.5 MG, UNK
     Dates: start: 20161206
  2. IBRANCE [Suspect]
     Active Substance: PALBOCICLIB
     Dosage: 125 MG, UNK
     Dates: start: 20161207
  3. IBRANCE [Suspect]
     Active Substance: PALBOCICLIB
     Dosage: 125 MG, UNK
     Dates: start: 20161208

REACTIONS (14)
  - Nausea [Not Recovered/Not Resolved]
  - Chills [Not Recovered/Not Resolved]
  - Pruritus [Unknown]
  - Back pain [Unknown]
  - Night sweats [Unknown]
  - Diarrhoea [Unknown]
  - Rash [Unknown]
  - Scab [Unknown]
  - Musculoskeletal pain [Unknown]
  - Restless legs syndrome [Unknown]
  - Hot flush [Unknown]
  - White blood cell count decreased [Unknown]
  - Constipation [Not Recovered/Not Resolved]
  - Breast pain [Unknown]

NARRATIVE: CASE EVENT DATE: 201702
